FAERS Safety Report 8040675-1 (Version None)
Quarter: 2012Q1

REPORT INFORMATION
  Report Type: 
  Country: None (occurrence: None)
  Receive Date: 20120111
  Receipt Date: 20120106
  Transmission Date: 20120608
  Serious: No
  Sender: FDA-Public Use
  Company Number: US-AMGEN-USASP2011065002

PATIENT
  Age: 52 Year
  Sex: Male

DRUGS (2)
  1. ENBREL [Suspect]
     Indication: PSORIATIC ARTHROPATHY
     Dosage: 50 MG, 2 TIMES/WK
     Dates: start: 20110808
  2. ENBREL [Suspect]
     Indication: PSORIASIS
     Dosage: 50 ML, 2 TIMES/WK
     Route: 058
     Dates: start: 20110401

REACTIONS (6)
  - SINUS HEADACHE [None]
  - RESPIRATORY TRACT CONGESTION [None]
  - SINUSITIS [None]
  - LOWER RESPIRATORY TRACT INFECTION [None]
  - UPPER RESPIRATORY TRACT INFECTION [None]
  - PRODUCTIVE COUGH [None]
